FAERS Safety Report 10255743 (Version 1)
Quarter: 2014Q2

REPORT INFORMATION
  Report Type: Spontaneous
  Country: US (occurrence: None)
  Receive Date: 20140522
  Receipt Date: 20140522
  Transmission Date: 20141212
  Serious: No
  Sender: FDA-Public Use
  Company Number: 1000053962

PATIENT
  Age: 86 Year
  Sex: Male

DRUGS (3)
  1. TUDORZA PRESSAIR (ACLIDINIUM BROMIDE) (400 MICROGRAM, POWDER) [Suspect]
     Indication: CHRONIC OBSTRUCTIVE PULMONARY DISEASE
     Dosage: 800 UG (400 UG, 2 IN 1 D)
     Route: 055
     Dates: start: 2013
  2. SYMBICORT (BUDESONIDE W/FORMOTEROL FUMARATE) [Concomitant]
  3. PREDNISONE [Concomitant]

REACTIONS (3)
  - Chronic obstructive pulmonary disease [None]
  - Nasal congestion [None]
  - Cough [None]
